FAERS Safety Report 10358154 (Version 3)
Quarter: 2014Q3

REPORT INFORMATION
  Report Type: Spontaneous
  Country: JP (occurrence: JP)
  Receive Date: 20140801
  Receipt Date: 20140926
  Transmission Date: 20150326
  Serious: Yes (Hospitalization, Other)
  Sender: FDA-Public Use
  Company Number: JP-009507513-1408JPN000314

PATIENT
  Age: 72 Year
  Sex: Male
  Weight: 57 kg

DRUGS (14)
  1. PEGINTRON [Suspect]
     Active Substance: PEGINTERFERON ALFA-2B
     Indication: CHRONIC HEPATITIS C
     Dosage: 50 MCG ONCE A WEEK (1X1 WEEK)
     Route: 058
     Dates: start: 20140421, end: 20140630
  2. AMLODIN (AMLODIPINE BESYLATE) [Suspect]
     Active Substance: AMLODIPINE BESYLATE
     Indication: HYPERTENSION
     Dosage: 5 MG, QD (1X1 DAY)
     Route: 048
     Dates: start: 2002
  3. GLYCYRON [Suspect]
     Active Substance: AMMONIUM GLYCYRRHIZATE\GLYCINE\METHIONINE
     Indication: HEPATIC FUNCTION ABNORMAL
     Dosage: 25 MG, TID (3X1 DAY)
     Route: 048
     Dates: start: 2002
  4. ALDACTONE [Suspect]
     Active Substance: SPIRONOLACTONE
     Indication: HYPERTENSION
     Dosage: 25 MG, QD (1X1 DAY)
     Route: 048
     Dates: start: 2002
  5. URSO [Suspect]
     Active Substance: URSODIOL
     Indication: HEPATIC FUNCTION ABNORMAL
     Dosage: 300 MG, TID (3X1 DAY)
     Route: 048
     Dates: start: 2002
  6. TAKEPRON [Suspect]
     Active Substance: LANSOPRAZOLE
     Indication: PROPHYLAXIS AGAINST GASTROINTESTINAL ULCER
     Dosage: 15 MG, QD (1X1 DAY)
     Route: 048
     Dates: start: 20130805
  7. LANIRAPID [Suspect]
     Active Substance: METILDIGOXIN
     Indication: ATRIAL FIBRILLATION
     Dosage: 0.1 MG, BID (2X1 DAY)
     Route: 048
     Dates: start: 2002
  8. LOXONIN [Suspect]
     Active Substance: LOXOPROFEN SODIUM
     Indication: PYREXIA
     Dosage: 60 MG, QD (1X1 DAY)
     Route: 048
     Dates: start: 20140421
  9. REBETOL [Suspect]
     Active Substance: RIBAVIRIN
     Dosage: 200 MG, QD (1X1 DAY)
     Route: 048
     Dates: start: 20140526, end: 20140630
  10. PLAVIX [Suspect]
     Active Substance: CLOPIDOGREL BISULFATE
     Indication: THROMBOSIS PROPHYLAXIS
     Dosage: 75 MG, QD (1X1 DAY)
     Route: 048
     Dates: start: 20101018
  11. REBETOL [Suspect]
     Active Substance: RIBAVIRIN
     Indication: CHRONIC HEPATITIS C
     Dosage: 200 MG, BID (2X1 DAY)
     Route: 048
     Dates: start: 20140421, end: 20140525
  12. SOVRIAD [Suspect]
     Active Substance: SIMEPREVIR
     Indication: CHRONIC HEPATITIS C
     Dosage: 100 MG, QD (1X1 DAY)
     Route: 048
     Dates: start: 20140421, end: 20140630
  13. BLOPRESS [Suspect]
     Active Substance: CANDESARTAN CILEXETIL
     Indication: HYPERTENSION
     Dosage: 4 MG, QD (1X1 DAY)
     Route: 048
     Dates: start: 20140421
  14. FERROMIA [Suspect]
     Active Substance: FERROUS CITRATE
     Indication: ANAEMIA
     Dosage: 100 MG, QD (1X1 DAY)
     Route: 048
     Dates: start: 20140421

REACTIONS (4)
  - Pleural effusion [Recovered/Resolved]
  - Haemorrhagic cerebral infarction [Recovering/Resolving]
  - Anaemia [Recovered/Resolved]
  - Cardiac hypertrophy [Recovered/Resolved]

NARRATIVE: CASE EVENT DATE: 20140526
